FAERS Safety Report 5947955-1 (Version None)
Quarter: 2008Q4

REPORT INFORMATION
  Report Type: 
  Country: None (occurrence: None)
  Receive Date: 20081111
  Receipt Date: 20081013
  Transmission Date: 20090506
  Serious: No
  Sender: FDA-Public Use
  Company Number: A0751580A

PATIENT
  Sex: Female

DRUGS (2)
  1. TREXIMET [Suspect]
     Indication: MIGRAINE
     Route: 048
     Dates: start: 20081001
  2. TOPAMAX [Concomitant]

REACTIONS (4)
  - CHEST DISCOMFORT [None]
  - NECK PAIN [None]
  - PAIN IN JAW [None]
  - THROAT TIGHTNESS [None]
